FAERS Safety Report 4931176-5 (Version None)
Quarter: 2006Q1

REPORT INFORMATION
  Report Type: 
  Country: None (occurrence: None)
  Receive Date: 20060302
  Receipt Date: 20060222
  Transmission Date: 20060701
  Serious: Yes (Hospitalization)
  Sender: FDA-Public Use
  Company Number: JP-MERCK-0602USA05648

PATIENT
  Age: 90 Year
  Sex: Female
  Weight: 46 kg

DRUGS (10)
  1. STROMECTOL [Suspect]
     Indication: ACARODERMATITIS
     Route: 048
     Dates: start: 20060124, end: 20060124
  2. STROMECTOL [Suspect]
     Route: 048
     Dates: start: 20060131, end: 20060131
  3. SERMION [Concomitant]
     Route: 048
  4. MERISLON [Concomitant]
     Route: 048
  5. MOBIC [Concomitant]
     Route: 048
  6. OPALMON [Concomitant]
     Route: 065
  7. THYRADIN [Concomitant]
     Route: 048
  8. EURAX [Concomitant]
     Route: 061
  9. BENZOIC ACID [Concomitant]
     Indication: ACARODERMATITIS
     Route: 065
  10. ZADITEN [Concomitant]
     Route: 065

REACTIONS (2)
  - ERYTHEMA [None]
  - RENAL DISORDER [None]
